FAERS Safety Report 5225065-9 (Version None)
Quarter: 2007Q1

REPORT INFORMATION
  Report Type: 
  Country: None (occurrence: None)
  Receive Date: 20070126
  Receipt Date: 20070112
  Transmission Date: 20070707
  Serious: Yes (Death)
  Sender: FDA-Public Use
  Company Number: 2006S1011729

PATIENT
  Age: 55 Year
  Sex: Male
  Weight: 63.5036 kg

DRUGS (6)
  1. FENTANYL TRANSDERMAL SYSTEM [Suspect]
     Indication: BACK PAIN
     Dosage: 400 UG/HR;ONCE;TRANSDERMAL
     Route: 062
     Dates: end: 20061201
  2. FENTANYL TRANSDERMAL SYSTEM [Suspect]
     Indication: NECK PAIN
     Dosage: 400 UG/HR;ONCE;TRANSDERMAL
     Route: 062
     Dates: end: 20061201
  3. CALCIUM CARBONATE [Concomitant]
  4. CHLOROTHIAZIDE [Concomitant]
  5. VERAPAMIL [Concomitant]
  6. ATENOLOL [Concomitant]

REACTIONS (3)
  - GASTRITIS HAEMORRHAGIC [None]
  - INCORRECT DOSE ADMINISTERED [None]
  - WRONG TECHNIQUE IN DRUG USAGE PROCESS [None]
